FAERS Safety Report 9669042 (Version 2)
Quarter: 2013Q4

REPORT INFORMATION
  Report Type: Spontaneous
  Country: US (occurrence: US)
  Receive Date: 20131105
  Receipt Date: 20131111
  Transmission Date: 20140711
  Serious: Yes (Life-Threatening)
  Sender: FDA-Public Use
  Company Number: US-PFIZER INC-2013312813

PATIENT
  Age: 85 Year
  Sex: Female

DRUGS (5)
  1. VALSARTAN [Suspect]
     Dosage: UNK
  2. SPIRONOLACTONE [Suspect]
     Dosage: UNK
  3. TRIMETHOPRIM-SULFAMETHOXAZOLE [Suspect]
     Indication: URINARY TRACT INFECTION
     Dosage: UNK
  4. SOTALOL [Suspect]
     Dosage: UNK
  5. WARFARIN [Concomitant]
     Dosage: UNK

REACTIONS (1)
  - Hyperkalaemia [Recovered/Resolved]
